FAERS Safety Report 9135598 (Version 1)
Quarter: 2013Q1

REPORT INFORMATION
  Report Type: Spontaneous
  Country: ES (occurrence: ES)
  Receive Date: 20130304
  Receipt Date: 20130304
  Transmission Date: 20140127
  Serious: Yes (Other)
  Sender: FDA-Public Use
  Company Number: ES-JNJFOC-20130300078

PATIENT
  Age: 34 Year
  Sex: Female
  Weight: 47 kg

DRUGS (2)
  1. REMICADE [Suspect]
     Indication: CROHN^S DISEASE
     Dosage: 100 MG
     Route: 042
     Dates: start: 20120126, end: 20120126
  2. REMICADE [Suspect]
     Indication: CROHN^S DISEASE
     Dosage: 100 MG
     Route: 042

REACTIONS (5)
  - Dyspnoea [Recovered/Resolved]
  - Blood disorder [Recovered/Resolved]
  - Chest discomfort [Recovered/Resolved]
  - Infusion related reaction [Recovered/Resolved]
  - Hypersensitivity [Recovered/Resolved]
